FAERS Safety Report 20189387 (Version 1)
Quarter: 2021Q4

REPORT INFORMATION
  Report Type: Spontaneous
  Country: US (occurrence: US)
  Receive Date: 20211215
  Receipt Date: 20211215
  Transmission Date: 20220304
  Serious: Yes (Hospitalization, Other)
  Sender: FDA-Public Use
  Company Number: US-PFIZER INC-202101706048

PATIENT
  Sex: Female

DRUGS (2)
  1. PROCARDIA XL [Suspect]
     Active Substance: NIFEDIPINE
     Indication: Blood pressure abnormal
     Dosage: 90 MG, DAILY
  2. PROCARDIA XL [Suspect]
     Active Substance: NIFEDIPINE
     Dosage: 90 MG (TAKING 3 OF THE PROCARDIA XL 30 MG DAILY)

REACTIONS (4)
  - Blood pressure inadequately controlled [Unknown]
  - Frequent bowel movements [Unknown]
  - Dysphagia [Unknown]
  - Product residue present [Unknown]
